FAERS Safety Report 25920962 (Version 1)
Quarter: 2025Q4

REPORT INFORMATION
  Report Type: Spontaneous
  Country: EU (occurrence: None)
  Receive Date: 20251014
  Receipt Date: 20251014
  Transmission Date: 20260118
  Serious: Yes (Death)
  Sender: ETHYPHARM
  Company Number: None

PATIENT
  Age: 51 Year
  Sex: Male

DRUGS (2)
  1. BUPRENORPHINE [Suspect]
     Active Substance: BUPRENORPHINE
     Dates: end: 202410
  2. ALCOHOL (ALCOHOL) [Suspect]
     Active Substance: ALCOHOL
     Dates: end: 202410

REACTIONS (2)
  - Drug use disorder [Fatal]
  - Asphyxia [Fatal]
